FAERS Safety Report 9505410 (Version 1)
Quarter: 2013Q1

REPORT INFORMATION
  Report Type: Spontaneous
  Country: US (occurrence: None)
  Receive Date: 20130220
  Receipt Date: 20130220
  Transmission Date: 20140127
  Serious: No
  Sender: FDA-Public Use
  Company Number: 1000041429

PATIENT
  Sex: Female

DRUGS (2)
  1. VIIBRYD [Suspect]
     Route: 048
  2. SEROQUEL (QUETIAPINE FUMARATE) [Suspect]

REACTIONS (1)
  - Weight increased [None]
